FAERS Safety Report 18404032 (Version 1)
Quarter: 2020Q4

REPORT INFORMATION
  Report Type: Spontaneous
  Country: US (occurrence: US)
  Receive Date: 20201020
  Receipt Date: 20201020
  Transmission Date: 20210114
  Serious: No
  Sender: FDA-Public Use
  Company Number: US-JNJFOC-20201013241

PATIENT
  Sex: Female
  Weight: 93.98 kg

DRUGS (1)
  1. CONCERTA [Suspect]
     Active Substance: METHYLPHENIDATE HYDROCHLORIDE
     Indication: PRODUCT USED FOR UNKNOWN INDICATION
     Route: 048

REACTIONS (6)
  - Negative thoughts [Unknown]
  - Somnolence [Unknown]
  - Anger [Unknown]
  - Apathy [Unknown]
  - Irritability [Unknown]
  - Abnormal behaviour [Unknown]
